FAERS Safety Report 12721188 (Version 1)
Quarter: 2016Q3

REPORT INFORMATION
  Report Type: Spontaneous
  Country: US (occurrence: US)
  Receive Date: 20160907
  Receipt Date: 20160907
  Transmission Date: 20161109
  Serious: Yes (Death, Other)
  Sender: FDA-Public Use
  Company Number: US-BRISTOL-MYERS SQUIBB COMPANY-BMS-2016-072561

PATIENT
  Sex: Male

DRUGS (2)
  1. YERVOY [Suspect]
     Active Substance: IPILIMUMAB
     Indication: MALIGNANT MELANOMA
     Dosage: 229.5 MG
     Route: 042
     Dates: start: 20140922
  2. YERVOY [Suspect]
     Active Substance: IPILIMUMAB
     Indication: LIVER DISORDER

REACTIONS (1)
  - Death [Fatal]
